FAERS Safety Report 5878192-7 (Version None)
Quarter: 2008Q3

REPORT INFORMATION
  Report Type: 
  Country: None (occurrence: None)
  Receive Date: 20080911
  Receipt Date: 20080904
  Transmission Date: 20090109
  Serious: Yes (Other)
  Sender: FDA-Public Use
  Company Number: PHHY2008FR18707

PATIENT
  Sex: Female
  Weight: 50 kg

DRUGS (10)
  1. ACLASTA [Suspect]
     Indication: OSTEOPOROSIS
     Dosage: UNK
     Route: 042
     Dates: start: 20080715
  2. SKENAN [Concomitant]
     Indication: PAIN
     Dosage: 10 MG, BID
     Route: 048
     Dates: start: 20060101
  3. SPASFON [Concomitant]
     Indication: PAIN
     Dosage: UNK
     Dates: start: 20080626
  4. FORLAX [Concomitant]
     Indication: CONSTIPATION
  5. LEXOMIL [Concomitant]
     Indication: ANXIETY
     Dosage: UNK
     Dates: start: 20050101
  6. CITALOPRAM HYDROBROMIDE [Concomitant]
     Indication: DEPRESSION
     Dosage: UNK
     Dates: start: 20050101
  7. ZOPICLONE [Concomitant]
     Indication: SLEEP DISORDER
     Dosage: UNK
     Dates: start: 20050101
  8. DOLIPRANE [Concomitant]
  9. CIPROFLOXACIN HYDROCHLORIDE [Concomitant]
  10. ANTIBIOTICS [Concomitant]

REACTIONS (12)
  - ARTHROPATHY [None]
  - ASTHENIA [None]
  - C-REACTIVE PROTEIN INCREASED [None]
  - DYSPNOEA [None]
  - EXTRASYSTOLES [None]
  - HAEMATOCRIT DECREASED [None]
  - HAEMATURIA [None]
  - HAEMOGLOBIN DECREASED [None]
  - LYMPHOCYTE COUNT DECREASED [None]
  - PYREXIA [None]
  - RED BLOOD CELL COUNT DECREASED [None]
  - RED BLOOD CELL SEDIMENTATION RATE INCREASED [None]
